FAERS Safety Report 8848230 (Version 1)
Quarter: 2012Q4

REPORT INFORMATION
  Report Type: 
  Country: US (occurrence: US)
  Receive Date: 20121018
  Receipt Date: 20121018
  Transmission Date: 20130627
  Serious: Yes (Hospitalization)
  Sender: FDA-Public Use
  Company Number: US-ROCHE-1123996

PATIENT
  Sex: Male

DRUGS (2)
  1. PROTROPIN [Suspect]
     Indication: FAILURE TO THRIVE
     Route: 058
     Dates: start: 19911125
  2. PROTROPIN [Suspect]
     Indication: GROWTH HORMONE DEFICIENCY
     Route: 058

REACTIONS (1)
  - Asthma [Unknown]
